FAERS Safety Report 6333457-X (Version None)
Quarter: 2009Q3

REPORT INFORMATION
  Report Type: 
  Country: None (occurrence: None)
  Receive Date: 20090828
  Receipt Date: 20090826
  Transmission Date: 20100115
  Serious: Yes (Death, Hospitalization, Other)
  Sender: FDA-Public Use
  Company Number: PHHY2009MX34477

PATIENT
  Age: 87 Year
  Sex: Male

DRUGS (1)
  1. DIOVAN [Suspect]
     Indication: HYPERTENSION
     Dosage: 1 TABLET (160 MG) PER DAY
     Route: 048
     Dates: start: 20070301, end: 20090123

REACTIONS (5)
  - CEREBRAL INFARCTION [None]
  - CEREBRAL PALSY [None]
  - DIPLEGIA [None]
  - HYPERTENSION [None]
  - RESPIRATORY ARREST [None]
